FAERS Safety Report 6877490-8 (Version None)
Quarter: 2010Q3

REPORT INFORMATION
  Report Type: 
  Country: None (occurrence: None)
  Receive Date: 20100727
  Receipt Date: 20091113
  Transmission Date: 20110219
  Serious: No
  Sender: FDA-Public Use
  Company Number: US-ABBOTT-09P-163-0604641-00

PATIENT
  Sex: Female
  Weight: 56.75 kg

DRUGS (1)
  1. SYNTHROID [Suspect]
     Indication: HYPOTHYROIDISM
     Dosage: DOSAGE UNKNOWN

REACTIONS (5)
  - FATIGUE [None]
  - FEELING ABNORMAL [None]
  - MOOD SWINGS [None]
  - PAIN [None]
  - PANIC ATTACK [None]
